FAERS Safety Report 24545159 (Version 1)
Quarter: 2024Q4

REPORT INFORMATION
  Report Type: Spontaneous
  Country: CZ (occurrence: CZ)
  Receive Date: 20241024
  Receipt Date: 20241024
  Transmission Date: 20250115
  Serious: Yes (Other)
  Sender: ALEXION PHARMACEUTICALS
  Company Number: CZ-ASTRAZENECA-202410EEA006398CZ

PATIENT
  Age: 69 Year

DRUGS (8)
  1. TAGRISSO [Suspect]
     Active Substance: OSIMERTINIB
     Indication: Lung neoplasm malignant
     Dosage: 80 MILLIGRAM
  2. TAGRISSO [Suspect]
     Active Substance: OSIMERTINIB
     Dosage: 80 MILLIGRAM
  3. TAGRISSO [Suspect]
     Active Substance: OSIMERTINIB
     Dosage: 80 MILLIGRAM
  4. TAGRISSO [Suspect]
     Active Substance: OSIMERTINIB
     Dosage: 80 MILLIGRAM
  5. AMIVANTAMAB [Concomitant]
     Active Substance: AMIVANTAMAB
     Dosage: 1050 MILLIGRAM
     Route: 065
  6. AMIVANTAMAB [Concomitant]
     Active Substance: AMIVANTAMAB
     Dosage: 1050 MILLIGRAM
  7. AMIVANTAMAB [Concomitant]
     Active Substance: AMIVANTAMAB
     Dosage: 700 MILLIGRAM
     Route: 065
  8. AMIVANTAMAB [Concomitant]
     Active Substance: AMIVANTAMAB
     Dosage: 700 MILLIGRAM

REACTIONS (3)
  - Malignant neoplasm progression [Unknown]
  - Drug resistance mutation [Unknown]
  - Off label use [Unknown]
